FAERS Safety Report 9938856 (Version 2)
Quarter: 2014Q2

REPORT INFORMATION
  Report Type: Spontaneous
  Country: US (occurrence: US)
  Receive Date: 20140303
  Receipt Date: 20140408
  Transmission Date: 20141212
  Serious: Yes (Other)
  Sender: FDA-Public Use
  Company Number: US-BAYER-2014-032326

PATIENT
  Age: 29 Year
  Sex: Female
  Weight: 124.72 kg

DRUGS (3)
  1. MIRENA [Suspect]
     Indication: CONTRACEPTION
     Dosage: 20 MCG/24HR, CONT
     Route: 015
     Dates: start: 20100604, end: 20130329
  2. MIRENA [Suspect]
     Indication: MENORRHAGIA
  3. IRON [Concomitant]
     Indication: ANAEMIA
     Dosage: UNK
     Dates: start: 2006

REACTIONS (7)
  - Uterine perforation [None]
  - Abdominal pain lower [None]
  - Pelvic pain [None]
  - Injury [None]
  - Device difficult to use [None]
  - Device breakage [None]
  - Emotional distress [None]
